FAERS Safety Report 17888152 (Version 1)
Quarter: 2020Q2

REPORT INFORMATION
  Report Type: Spontaneous
  Country: US (occurrence: US)
  Receive Date: 20200610
  Receipt Date: 20200610
  Transmission Date: 20200714
  Serious: No
  Sender: FDA-Public Use
  Company Number: None

PATIENT
  Age: 75 Year
  Sex: Female

DRUGS (21)
  1. ALBUTEROL. [Concomitant]
     Active Substance: ALBUTEROL
  2. IMIPRAMINE [Concomitant]
     Active Substance: IMIPRAMINE
  3. NOVOLOG [Concomitant]
     Active Substance: INSULIN ASPART
  4. FLONASE [Concomitant]
     Active Substance: FLUTICASONE PROPIONATE
  5. GABAPENTIN. [Concomitant]
     Active Substance: GABAPENTIN
  6. JANUVIA [Concomitant]
     Active Substance: SITAGLIPTIN PHOSPHATE
  7. VITAMIN D3 [Concomitant]
     Active Substance: CHOLECALCIFEROL
  8. PROBIOTIC [Concomitant]
     Active Substance: PROBIOTICS NOS
  9. TYLENOL [Concomitant]
     Active Substance: ACETAMINOPHEN
  10. ESBRIET [Suspect]
     Active Substance: PIRFENIDONE
     Indication: IDIOPATHIC PULMONARY FIBROSIS
     Route: 048
     Dates: start: 20190822
  11. ATROVASTATIN [Concomitant]
     Active Substance: ATORVASTATIN CALCIUM
  12. BASAGLAR [Concomitant]
     Active Substance: INSULIN GLARGINE
  13. CETRIZINE [Concomitant]
     Active Substance: CETIRIZINE HYDROCHLORIDE
  14. TUSSIN MAX [Concomitant]
  15. FLOVENT DISK [Concomitant]
  16. LOSARTAN/HCT [Concomitant]
     Active Substance: HYDROCHLOROTHIAZIDE\LOSARTAN POTASSIUM
  17. MULTIPLE VIT [Concomitant]
  18. VITAMIN B12 [Concomitant]
     Active Substance: CYANOCOBALAMIN
  19. OMEPRAZOLE. [Concomitant]
     Active Substance: OMEPRAZOLE
  20. PROAIR HFA [Concomitant]
     Active Substance: ALBUTEROL SULFATE
  21. VOLTAREN [Concomitant]
     Active Substance: DICLOFENAC SODIUM

REACTIONS (3)
  - Dyspnoea [None]
  - Product dose omission [None]
  - Wrist fracture [None]

NARRATIVE: CASE EVENT DATE: 20200609
